FAERS Safety Report 20658927 (Version 1)
Quarter: 2022Q1

REPORT INFORMATION
  Report Type: Report from Study
  Country: US (occurrence: US)
  Receive Date: 20220331
  Receipt Date: 20220331
  Transmission Date: 20220424
  Serious: Yes (Other)
  Sender: FDA-Public Use
  Company Number: US-ABBVIE-22K-163-4335749-00

PATIENT
  Sex: Female

DRUGS (2)
  1. HUMIRA [Suspect]
     Active Substance: ADALIMUMAB
     Indication: Crohn^s disease
     Route: 058
  2. HUMIRA [Suspect]
     Active Substance: ADALIMUMAB
     Indication: Colitis ulcerative

REACTIONS (9)
  - Vascular occlusion [Recovered/Resolved]
  - Gait inability [Recovered/Resolved]
  - Skin discolouration [Recovered/Resolved]
  - Sensory disturbance [Unknown]
  - Arthropathy [Recovered/Resolved]
  - Musculoskeletal disorder [Recovered/Resolved]
  - Influenza [Unknown]
  - Pain in extremity [Recovered/Resolved]
  - Drug ineffective [Unknown]
